FAERS Safety Report 6710480-4 (Version None)
Quarter: 2010Q2

REPORT INFORMATION
  Report Type: 
  Country: None (occurrence: None)
  Receive Date: 20100504
  Receipt Date: 20100414
  Transmission Date: 20101027
  Serious: Yes (Other)
  Sender: FDA-Public Use
  Company Number: US-ELI_LILLY_AND_COMPANY-US201003003068

PATIENT
  Sex: Female

DRUGS (9)
  1. FORTEO [Suspect]
     Indication: OSTEOPOROSIS
     Dosage: 20 UG, DAILY (1/D)
     Route: 065
     Dates: start: 20080401
  2. FORTEO [Suspect]
     Dosage: 20 UG, DAILY (1/D)
  3. FORTEO [Suspect]
     Dosage: 20 UG, DAILY (1/D)
  4. CALCIUM WITH VITAMIN D [Concomitant]
  5. MAGNESIUM [Concomitant]
  6. VITAMIN K TAB [Concomitant]
  7. LAMICTAL [Concomitant]
     Dosage: 100 MG, 2/D
  8. CLONAZEPAM [Concomitant]
     Dosage: 0.5 MG, 3/D
  9. NEURONTIN [Concomitant]
     Dosage: 1 D/F, 3/D

REACTIONS (6)
  - ADRENAL DISORDER [None]
  - FALL [None]
  - FRACTURED SACRUM [None]
  - IMPAIRED HEALING [None]
  - PAIN [None]
  - WRIST FRACTURE [None]
